FAERS Safety Report 19062964 (Version 1)
Quarter: 2021Q1

REPORT INFORMATION
  Report Type: Spontaneous
  Country: US (occurrence: US)
  Receive Date: 20210326
  Receipt Date: 20210326
  Transmission Date: 20210420
  Serious: No
  Sender: FDA-Public Use
  Company Number: US-VERTEX PHARMACEUTICALS-2021-004812

PATIENT
  Sex: Female

DRUGS (1)
  1. TRIKAFTA [Suspect]
     Active Substance: ELEXACAFTOR\IVACAFTOR\TEZACAFTOR
     Indication: CYSTIC FIBROSIS
     Dosage: ELEXACAFTOR 100MG /TEZACAFTOR 50MG/IVACAFTOR 75MG AND IVACAFTOR 150MG, UNSPECIFIED FREQUENCY
     Route: 048

REACTIONS (2)
  - Cystic fibrosis [Unknown]
  - Respiratory disorder [Unknown]
